FAERS Safety Report 9172067 (Version 1)
Quarter: 2013Q1

REPORT INFORMATION
  Report Type: Spontaneous
  Country: US (occurrence: US)
  Receive Date: 20130319
  Receipt Date: 20130319
  Transmission Date: 20140127
  Serious: No
  Sender: FDA-Public Use
  Company Number: US-PFIZER INC-2013090288

PATIENT
  Age: 69 Year
  Sex: Male

DRUGS (17)
  1. XELJANZ [Suspect]
     Dosage: 5 MG, 2X/DAY
     Route: 048
     Dates: start: 20121217
  2. LEVOTHYROXINE [Concomitant]
     Dosage: 88 UG, UNK
  3. LISINOPRIL [Concomitant]
     Dosage: 5 MG, UNK
  4. BENICAR [Concomitant]
     Dosage: 5 MG, UNK
  5. HYDROCHLOROTHIAZIDE WITH TRIAMTERENE [Concomitant]
     Dosage: 25-50MG
  6. POTASSIUM [Concomitant]
     Dosage: 25 MEQ, UNK
  7. THEOPHYLLINE [Concomitant]
     Dosage: 200 MG, UNK
  8. FLOMOX [Concomitant]
     Dosage: 0.4 MG, UNK
  9. METHOTREXATE [Concomitant]
     Dosage: 20 MG, UNK
  10. VITAMIN C [Concomitant]
     Dosage: UNK
  11. VITAMIN E [Concomitant]
     Dosage: UNK
  12. MAGNESIUM [Concomitant]
     Dosage: 400 MG, UNK
  13. CO-Q-10 [Concomitant]
     Dosage: UNK
  14. NIACIN [Concomitant]
     Dosage: 400-100
  15. VITAMIN B COMPLEX [Concomitant]
     Dosage: 50 TAB
  16. LUTEIN [Concomitant]
     Dosage: 40 MG, UNK
  17. ASTAXANTHIN [Concomitant]
     Dosage: 4 MG, UNK

REACTIONS (1)
  - Acne [Unknown]
